FAERS Safety Report 21770256 (Version 1)
Quarter: 2022Q4

REPORT INFORMATION
  Report Type: Spontaneous
  Country: IL (occurrence: IL)
  Receive Date: 20221223
  Receipt Date: 20221223
  Transmission Date: 20230113
  Serious: Yes (Other)
  Sender: FDA-Public Use
  Company Number: IL-STERISCIENCE B.V.-2022-ST-000395

PATIENT
  Weight: 1.365 kg

DRUGS (13)
  1. LABETALOL [Suspect]
     Active Substance: LABETALOL\LABETALOL HYDROCHLORIDE
     Indication: Product used for unknown indication
     Dosage: PATIENT^S MOTHER DOSE WAS 10 MILLIGRAM
     Route: 064
  2. MIDAZOLAM [Suspect]
     Active Substance: MIDAZOLAM
     Indication: Product used for unknown indication
     Dosage: PATIENT^S MOTHER DOSE WAS 2 MILLIGRAM
     Route: 064
  3. PROPOFOL [Suspect]
     Active Substance: PROPOFOL
     Indication: Product used for unknown indication
     Dosage: PATIENT^S MOTHER DOSE WAS 300 MILLIGRAM
     Route: 064
  4. SUCCINYLCHOLINE [Suspect]
     Active Substance: SUCCINYLCHOLINE
     Indication: Product used for unknown indication
     Dosage: PATIENT^S MOTHER DOSE WAS 100 MILLIGRAM
     Route: 064
  5. ROCURONIUM BROMIDE [Suspect]
     Active Substance: ROCURONIUM BROMIDE
     Indication: Product used for unknown indication
     Dosage: PATIENT^S MOTHER DOSE WAS 10 MILLIGRAM
     Route: 064
  6. CLINDAMYCIN [Suspect]
     Active Substance: CLINDAMYCIN
     Indication: Product used for unknown indication
     Dosage: PATIENT^S MOTHER DOSE WAS 900 MILLIGRAM
     Route: 064
  7. ATROPINE [Suspect]
     Active Substance: ATROPINE
     Indication: Product used for unknown indication
     Dosage: PATIENT^S MOTHER DOSE WAS 1 MILLIGRAM
     Route: 064
  8. NEOSTIGMINE [Suspect]
     Active Substance: NEOSTIGMINE
     Indication: Product used for unknown indication
     Dosage: PATIENT^S MOTHER DOSE WAS 2.5 MILLIGRAM
     Route: 064
  9. FENTANYL [Suspect]
     Active Substance: FENTANYL
     Indication: Product used for unknown indication
     Dosage: PATIENT^S MOTHER DOSE WAS 100 MICROGRAM
     Route: 064
  10. MORPHINE [Suspect]
     Active Substance: MORPHINE
     Indication: Product used for unknown indication
     Dosage: PATIENT^S MOTHER DOSE WAS 5 MILLIGRAM
     Route: 064
  11. TRANEXAMIC ACID [Suspect]
     Active Substance: TRANEXAMIC ACID
     Indication: Product used for unknown indication
     Dosage: PATIENT^S MOTHER DOSE WAS 1 GRAM
     Route: 064
  12. OXYTOCIN [Suspect]
     Active Substance: OXYTOCIN
     Indication: Product used for unknown indication
     Dosage: PATIENT^S MOTHER DOSE WAS 25 INTERNATIONAL UNIT
     Route: 064
  13. UNSPECIFIED INGREDIENT [Suspect]
     Active Substance: UNSPECIFIED INGREDIENT
     Indication: Product used for unknown indication
     Dosage: UNK
     Route: 064

REACTIONS (3)
  - Premature baby [Unknown]
  - Low birth weight baby [Unknown]
  - Foetal exposure during delivery [Unknown]
